FAERS Safety Report 4683032-8 (Version None)
Quarter: 2005Q2

REPORT INFORMATION
  Report Type: 
  Country: None (occurrence: None)
  Receive Date: 20050602
  Receipt Date: 20050302
  Transmission Date: 20051028
  Serious: No
  Sender: FDA-Public Use
  Company Number: USA050392496

PATIENT
  Age: 47 Year
  Sex: Female

DRUGS (3)
  1. CYMBALTA [Suspect]
     Dosage: 30 MG/2 DAY
     Dates: start: 20050203
  2. WELLBUTRIN [Concomitant]
  3. CLONAPIN (CLONAZEPAM) [Concomitant]

REACTIONS (1)
  - DYSKINESIA [None]
